FAERS Safety Report 4580542-9 (Version None)
Quarter: 2005Q1

REPORT INFORMATION
  Report Type: 
  Country: None (occurrence: None)
  Receive Date: 20050127
  Receipt Date: 20040914
  Transmission Date: 20050727
  Serious: No
  Sender: FDA-Public Use
  Company Number: USA040874914

PATIENT
  Age: 42 Year
  Sex: Female

DRUGS (3)
  1. STRATTERA [Suspect]
     Dosage: 60 MG DAY
     Dates: start: 20040701
  2. EFFEXOR [Concomitant]
  3. KLONOPIN [Concomitant]

REACTIONS (2)
  - DRUG INTERACTION [None]
  - HYPOMANIA [None]
